FAERS Safety Report 17112991 (Version 1)
Quarter: 2019Q4

REPORT INFORMATION
  Report Type: Spontaneous
  Country: AU (occurrence: AU)
  Receive Date: 20191204
  Receipt Date: 20191204
  Transmission Date: 20200122
  Serious: Yes (Hospitalization, Other)
  Sender: FDA-Public Use
  Company Number: AU-ACTELION-A-CH2019-198675

PATIENT
  Age: 23 Year

DRUGS (5)
  1. CLOPIDOGREL [Concomitant]
     Active Substance: CLOPIDOGREL BISULFATE
  2. SILDENAFIL. [Concomitant]
     Active Substance: SILDENAFIL
     Indication: PULMONARY ARTERIAL HYPERTENSION
  3. OPSUMIT [Suspect]
     Active Substance: MACITENTAN
     Indication: PULMONARY ARTERIAL HYPERTENSION
     Dosage: UNK
     Route: 048
     Dates: start: 20160812
  4. ASA [Concomitant]
     Active Substance: ASPIRIN
  5. AMIODARONE [Concomitant]
     Active Substance: AMIODARONE

REACTIONS (6)
  - Drug ineffective [Unknown]
  - Ventricular septal defect repair [Unknown]
  - Pericardial drainage [Recovered/Resolved]
  - Vascular shunt [Unknown]
  - Cardiac tamponade [Recovered/Resolved]
  - Patent ductus arteriosus [Unknown]

NARRATIVE: CASE EVENT DATE: 20180315
